FAERS Safety Report 6635490-7 (Version None)
Quarter: 2010Q1

REPORT INFORMATION
  Report Type: 
  Country: None (occurrence: None)
  Receive Date: 20100315
  Receipt Date: 20090630
  Transmission Date: 20100710
  Serious: Yes (Death)
  Sender: FDA-Public Use
  Company Number: US-ABBOTT-09P-163-0583025-00

PATIENT
  Sex: Male

DRUGS (2)
  1. DEPAKOTE [Suspect]
     Indication: CONVULSION
     Route: 050
  2. KEPPRA [Concomitant]
     Indication: CONVULSION
     Route: 050

REACTIONS (12)
  - BODY TEMPERATURE DECREASED [None]
  - CAPILLARY DISORDER [None]
  - CHOKING [None]
  - DEHYDRATION [None]
  - FEEDING TUBE COMPLICATION [None]
  - GASTROENTERITIS [None]
  - GASTROINTESTINAL SOUNDS ABNORMAL [None]
  - LETHARGY [None]
  - LIVEDO RETICULARIS [None]
  - MUCOUS MEMBRANE DISORDER [None]
  - PALLOR [None]
  - PANCREATITIS HAEMORRHAGIC [None]
